FAERS Safety Report 14467197 (Version 6)
Quarter: 2018Q2

REPORT INFORMATION
  Report Type: Report from Study
  Country: DE (occurrence: DE)
  Receive Date: 20180131
  Receipt Date: 20180510
  Transmission Date: 20180711
  Serious: Yes (Hospitalization)
  Sender: FDA-Public Use
  Company Number: PHHY2018DE009723

PATIENT
  Sex: Male
  Weight: 78 kg

DRUGS (9)
  1. COSENTYX [Suspect]
     Active Substance: SECUKINUMAB
     Dosage: 150 MG, ONCE PER APPLICATION
     Route: 065
     Dates: start: 20171113, end: 20171113
  2. PANTOZAL [Concomitant]
     Indication: PRODUCT USED FOR UNKNOWN INDICATION
     Dosage: 40 MG, QD (1-0-0)
     Route: 048
     Dates: start: 20180107, end: 20180209
  3. VALORON [Concomitant]
     Active Substance: TILIDINE HYDROCHLORIDE
     Indication: ANKYLOSING SPONDYLITIS
     Dosage: 50 MG, BID (1-0-1)
     Route: 048
     Dates: start: 20180107, end: 20180209
  4. COSENTYX [Suspect]
     Active Substance: SECUKINUMAB
     Dosage: 150 MG, ONCE PER APPLICATION
     Route: 065
     Dates: start: 20171023
  5. TRAMAL [Concomitant]
     Active Substance: TRAMADOL
     Indication: ANKYLOSING SPONDYLITIS
     Dosage: 1 DF, (ONE TIME APPLICATION)
     Route: 030
     Dates: start: 20171205, end: 20171205
  6. DICLOFENAC [Concomitant]
     Active Substance: DICLOFENAC
     Indication: ANKYLOSING SPONDYLITIS
     Dosage: 75 MG, PRN
     Route: 048
     Dates: start: 20171215
  7. COSENTYX [Suspect]
     Active Substance: SECUKINUMAB
     Indication: ANKYLOSING SPONDYLITIS
     Dosage: 150 MG, ONCE PER APPLICATION
     Route: 065
     Dates: start: 20171016
  8. COSENTYX [Suspect]
     Active Substance: SECUKINUMAB
     Dosage: 150 MG, ONCE PER APPLICATION
     Route: 065
     Dates: start: 20171030
  9. COSENTYX [Suspect]
     Active Substance: SECUKINUMAB
     Dosage: 150 MG, ONCE PER APPLICATION
     Route: 065
     Dates: start: 20171106

REACTIONS (9)
  - Streptococcal sepsis [Recovering/Resolving]
  - Thyroid mass [Not Recovered/Not Resolved]
  - Anaemia folate deficiency [Recovering/Resolving]
  - Nausea [Recovered/Resolved]
  - Diarrhoea [Recovered/Resolved]
  - Gastroenteritis yersinia [Recovered/Resolved]
  - Anaemia of chronic disease [Recovering/Resolving]
  - Vomiting [Recovered/Resolved]
  - Actinomycosis [Recovered/Resolved]

NARRATIVE: CASE EVENT DATE: 20171205
